FAERS Safety Report 7430800-5 (Version None)
Quarter: 2011Q2

REPORT INFORMATION
  Report Type: 
  Country: None (occurrence: None)
  Receive Date: 20110421
  Receipt Date: 20110414
  Transmission Date: 20111010
  Serious: Yes (Other)
  Sender: FDA-Public Use
  Company Number: US-PURDUE-USA-2011-0064771

PATIENT
  Sex: Female

DRUGS (5)
  1. DOXYCYCLINE [Concomitant]
     Indication: PRODUCT USED FOR UNKNOWN INDICATION
     Dosage: 100 MG, SEE TEXT
  2. NEXIUM [Concomitant]
     Indication: PRODUCT USED FOR UNKNOWN INDICATION
     Dosage: 40 MG, DAILY
  3. VICODIN [Concomitant]
     Indication: PAIN
  4. AMLODIPINE [Concomitant]
     Indication: PRODUCT USED FOR UNKNOWN INDICATION
     Dosage: 5 MG, DAILY
  5. COLACE CAPSULES [Suspect]
     Indication: CONSTIPATION
     Dosage: 1 TABLET, TID
     Dates: start: 20110211, end: 20110213

REACTIONS (12)
  - HYPERHIDROSIS [None]
  - DIARRHOEA HAEMORRHAGIC [None]
  - ABDOMINAL PAIN UPPER [None]
  - COLITIS ULCERATIVE [None]
  - VOMITING [None]
  - HAEMORRHOIDS [None]
  - DIVERTICULUM INTESTINAL [None]
  - ISCHAEMIA [None]
  - PAINFUL DEFAECATION [None]
  - RECTAL HAEMORRHAGE [None]
  - DIARRHOEA [None]
  - HAEMATOCHEZIA [None]
